FAERS Safety Report 10607352 (Version 1)
Quarter: 2014Q4

REPORT INFORMATION
  Report Type: Spontaneous
  Country: US (occurrence: None)
  Receive Date: 20141124
  Receipt Date: 20141124
  Transmission Date: 20150529
  Serious: Yes (Hospitalization)
  Sender: FDA-Public Use
  Company Number: None

PATIENT
  Age: 78 Year
  Sex: Female
  Weight: 86.7 kg

DRUGS (15)
  1. PROTONIX [Concomitant]
     Active Substance: PANTOPRAZOLE SODIUM
  2. CIPRO [Concomitant]
     Active Substance: CIPROFLOXACIN HYDROCHLORIDE
  3. PLAVIX [Concomitant]
     Active Substance: CLOPIDOGREL BISULFATE
  4. PERCOCET [Concomitant]
     Active Substance: ACETAMINOPHEN\OXYCODONE HYDROCHLORIDE
  5. ZOLOFT [Concomitant]
     Active Substance: SERTRALINE HYDROCHLORIDE
  6. LYRICA [Concomitant]
     Active Substance: PREGABALIN
  7. LEVOTHYROXINE [Concomitant]
     Active Substance: LEVOTHYROXINE
  8. KEPPRA [Concomitant]
     Active Substance: LEVETIRACETAM
  9. METOPROLOL [Concomitant]
     Active Substance: METOPROLOL
  10. DURAGESIC [Suspect]
     Active Substance: FENTANYL
     Indication: PAIN
     Dosage: 75MCG  Q3D  TOPICALLY?CHRONIC WITH RECENT INCREASE
     Route: 061
  11. LASIX [Concomitant]
     Active Substance: FUROSEMIDE
  12. EXELON [Concomitant]
     Active Substance: RIVASTIGMINE TARTRATE
  13. VITAMIN D [Concomitant]
     Active Substance: CHOLECALCIFEROL
  14. CA+D [Concomitant]
  15. LISPRO [Concomitant]
     Active Substance: INSULIN LISPRO

REACTIONS (9)
  - Hypoventilation [None]
  - Accidental overdose [None]
  - Unevaluable event [None]
  - Hypoxia [None]
  - Cardiac failure congestive [None]
  - Pleural effusion [None]
  - Incorrect drug dosage form administered [None]
  - Acute respiratory failure [None]
  - Sleep apnoea syndrome [None]

NARRATIVE: CASE EVENT DATE: 20140603
